FAERS Safety Report 5232601-5 (Version None)
Quarter: 2007Q1

REPORT INFORMATION
  Report Type: 
  Country: None (occurrence: None)
  Receive Date: 20061204
  Receipt Date: 20060919
  Transmission Date: 20070707
  Serious: No
  Sender: FDA-Public Use
  Company Number: 2006-BP-10354BP

PATIENT
  Age: 64 Year
  Sex: Female

DRUGS (2)
  1. SPIRIVA [Suspect]
     Indication: CHRONIC OBSTRUCTIVE PULMONARY DISEASE
     Dosage: 18 MCG (18 MCG,1 CAP QD),IH
     Dates: start: 20060501
  2. SPIRIVA [Suspect]

REACTIONS (1)
  - DRUG INEFFECTIVE [None]
